FAERS Safety Report 16586427 (Version 2)
Quarter: 2019Q3

REPORT INFORMATION
  Report Type: Spontaneous
  Country: KR (occurrence: KR)
  Receive Date: 20190717
  Receipt Date: 20190719
  Transmission Date: 20191004
  Serious: No
  Sender: FDA-Public Use
  Company Number: KR-ASTRAZENECA-2019SF00977

PATIENT
  Age: 83 Year
  Sex: Male

DRUGS (5)
  1. IRESSA [Suspect]
     Active Substance: GEFITINIB
     Dosage: EVERY OTHER DAY
     Route: 048
     Dates: start: 20190715
  2. IRESSA [Suspect]
     Active Substance: GEFITINIB
     Dosage: EVERY OTHER DAY
     Route: 048
     Dates: start: 20190308
  3. IRESSA [Suspect]
     Active Substance: GEFITINIB
     Route: 048
     Dates: start: 20181102
  4. IRESSA [Suspect]
     Active Substance: GEFITINIB
     Route: 048
     Dates: start: 20190226, end: 20190307
  5. IRESSA [Suspect]
     Active Substance: GEFITINIB
     Dosage: EVERY OTHER DAY
     Route: 048
     Dates: start: 20190418

REACTIONS (2)
  - Dermatitis [Unknown]
  - Rash [Recovered/Resolved]

NARRATIVE: CASE EVENT DATE: 20190226
